FAERS Safety Report 20956549 (Version 2)
Quarter: 2022Q2

REPORT INFORMATION
  Report Type: Report from Study
  Country: JP (occurrence: JP)
  Receive Date: 20220614
  Receipt Date: 20220617
  Transmission Date: 20220721
  Serious: Yes (Death, Life-Threatening)
  Sender: FDA-Public Use
  Company Number: JP-ONO-2022JP016423

PATIENT
  Age: 70 Year
  Sex: Male
  Weight: 70.6 kg

DRUGS (17)
  1. BRAFTOVI [Suspect]
     Active Substance: ENCORAFENIB
     Indication: Thyroid cancer
     Dosage: 450 MG
     Route: 048
     Dates: start: 20220603, end: 20220609
  2. MEKTOVI [Suspect]
     Active Substance: BINIMETINIB
     Indication: Thyroid cancer
     Dosage: 90 MG
     Route: 048
     Dates: start: 20220603, end: 20220609
  3. HYDROMORPHONE HYDROCHLORIDE [Concomitant]
     Active Substance: HYDROMORPHONE HYDROCHLORIDE
     Indication: Cancer pain
     Dosage: 18 MG, 1X/DAY
     Route: 048
     Dates: start: 20220228, end: 20220609
  4. ELIQUIS [Concomitant]
     Active Substance: APIXABAN
     Indication: Pulmonary embolism
     Dosage: 5 MG, Q12H
     Route: 048
     Dates: start: 20220514, end: 20220609
  5. LEVOTHYROXINE SODIUM [Concomitant]
     Active Substance: LEVOTHYROXINE SODIUM
     Indication: Post procedural hypothyroidism
     Dosage: 200 ?G, EVERYDAY
     Route: 048
     Dates: start: 20210611, end: 20220609
  6. AMLODIPINE [Concomitant]
     Active Substance: AMLODIPINE BESYLATE
     Indication: Essential hypertension
     Dosage: 5 MG, EVERYDAY (ORALLY DISINTEGRATING )
     Route: 048
     Dates: end: 20220609
  7. AZILSARTAN KAMEDOXOMIL [Concomitant]
     Active Substance: AZILSARTAN KAMEDOXOMIL
     Indication: Hypertension
     Dosage: 40 MG, EVERYDAY
     Route: 048
     Dates: start: 20210813, end: 20220609
  8. LANSOPRAZOLE [Concomitant]
     Active Substance: LANSOPRAZOLE
     Indication: Chronic gastritis
     Dosage: 15 MG, EVERYDAY
     Route: 048
     Dates: start: 20220515, end: 20220609
  9. LYRICA [Concomitant]
     Active Substance: PREGABALIN
     Indication: Cancer pain
     Dosage: 75 MG, Q12H
     Route: 048
     Dates: start: 20220516, end: 20220609
  10. CALONAL [Concomitant]
     Active Substance: ACETAMINOPHEN
     Indication: Back pain
     Dosage: 1000 MG, Q8H
     Route: 048
     Dates: start: 20220228, end: 20220609
  11. CYMBALTA [Concomitant]
     Active Substance: DULOXETINE HYDROCHLORIDE
     Indication: Back pain
     Dosage: 40 MG, EVERYDAY
     Route: 048
     Dates: start: 20220519, end: 20220609
  12. LAGNOS NF [Concomitant]
     Indication: Constipation
     Dosage: 24 G, Q12H (JELLY)
     Route: 048
     Dates: start: 20220606, end: 20220609
  13. SYMPROIC [Concomitant]
     Active Substance: NALDEMEDINE
     Indication: Constipation
     Dosage: 40 MG, EVERYDAY
     Route: 048
     Dates: start: 20220606, end: 20220609
  14. DAYVIGO [Concomitant]
     Active Substance: LEMBOREXANT
     Indication: Insomnia
     Dosage: 5 MG, EVERYDAY
     Route: 048
     Dates: start: 20220520, end: 20220609
  15. QUETIAPINE [Concomitant]
     Active Substance: QUETIAPINE
     Indication: Insomnia
     Dosage: 25 MG, EVERYDAY
     Route: 048
     Dates: start: 20220520, end: 20220609
  16. NAPROXEN [Concomitant]
     Active Substance: NAPROXEN
     Indication: Back pain
     Dosage: 100 MG, Q8H
     Route: 048
     Dates: start: 20220607, end: 20220609
  17. NAPROXEN [Concomitant]
     Active Substance: NAPROXEN
     Indication: Tumour associated fever

REACTIONS (2)
  - Pneumonia aspiration [Fatal]
  - Off label use [Unknown]

NARRATIVE: CASE EVENT DATE: 20220603
